FAERS Safety Report 8984693 (Version 1)
Quarter: 2012Q4

REPORT INFORMATION
  Report Type: Spontaneous
  Country: US (occurrence: None)
  Receive Date: 20121218
  Receipt Date: 20121218
  Transmission Date: 20130627
  Serious: Yes (Other)
  Sender: FDA-Public Use
  Company Number: 2012P1066715

PATIENT
  Age: 19 Year
  Sex: Female
  Weight: 56.7 kg

DRUGS (2)
  1. LAMOTRIGINE [Suspect]
     Indication: SEIZURE
     Route: 048
     Dates: start: 201208
  2. FOLIC ACID [Concomitant]

REACTIONS (3)
  - Scratch [None]
  - Haemorrhage [None]
  - Menorrhagia [None]
